FAERS Safety Report 7951651-9 (Version None)
Quarter: 2011Q4

REPORT INFORMATION
  Report Type: 
  Country: None (occurrence: None)
  Receive Date: 20111201
  Receipt Date: 20111122
  Transmission Date: 20120403
  Serious: Yes (Hospitalization)
  Sender: FDA-Public Use
  Company Number: US-CELGENEUS-163-21880-11113608

PATIENT
  Sex: Female
  Weight: 129.84 kg

DRUGS (8)
  1. FUROSEMIDE [Concomitant]
     Dosage: 40 MILLIGRAM
     Route: 048
     Dates: start: 20100101
  2. GEMFIBROZIL [Concomitant]
     Dosage: 60 MILLIGRAM
     Route: 048
     Dates: start: 20100101
  3. VERAPAMIL [Concomitant]
     Dosage: 240 MILLIGRAM
     Route: 048
     Dates: start: 20100101
  4. GERD MED [Concomitant]
     Route: 048
     Dates: start: 20111101
  5. POTASSIUM ACETATE [Concomitant]
     Dosage: 20 MILLIEQUIVALENTS
     Route: 048
     Dates: start: 20100101
  6. RELAXABINE [Concomitant]
     Dosage: 75 MILLIGRAM
     Route: 048
     Dates: start: 20100101
  7. REVLIMID [Suspect]
     Indication: MULTIPLE MYELOMA
     Dosage: 10 MILLIGRAM
     Route: 048
     Dates: start: 20110930
  8. RANITIDINE [Concomitant]
     Dosage: 300 MILLIGRAM
     Route: 048
     Dates: start: 20100101

REACTIONS (3)
  - GASTROINTESTINAL HAEMORRHAGE [None]
  - MEMORY IMPAIRMENT [None]
  - CONFUSIONAL STATE [None]
